FAERS Safety Report 8908619 (Version 1)
Quarter: 2012Q4

REPORT INFORMATION
  Report Type: 
  Country: US (occurrence: US)
  Receive Date: 20121114
  Receipt Date: 20121114
  Transmission Date: 20130627
  Serious: No
  Sender: FDA-Public Use
  Company Number: US-ASTRAZENECA-2012SE82926

PATIENT
  Age: 78 Year
  Sex: Female

DRUGS (2)
  1. NEXIUM [Suspect]
     Route: 048
  2. PRILOSEC [Suspect]
     Route: 048

REACTIONS (6)
  - Arthritis [Unknown]
  - General physical health deterioration [Unknown]
  - Deafness [Unknown]
  - Amnesia [Unknown]
  - Limb discomfort [Unknown]
  - Pancreatic disorder [Unknown]
